FAERS Safety Report 5351481-0 (Version None)
Quarter: 2007Q2

REPORT INFORMATION
  Report Type: 
  Country: None (occurrence: None)
  Receive Date: 20070521
  Receipt Date: 20070214
  Transmission Date: 20071010
  Serious: No
  Sender: FDA-Public Use
  Company Number: WAES 0702USA02764

PATIENT
  Sex: 0

DRUGS (1)
  1. JANUVIA [Suspect]

REACTIONS (1)
  - ADVERSE EVENT [None]
